FAERS Safety Report 12718240 (Version 5)
Quarter: 2016Q4

REPORT INFORMATION
  Report Type: Spontaneous
  Country: GB (occurrence: GB)
  Receive Date: 20160906
  Receipt Date: 20161110
  Transmission Date: 20170207
  Serious: Yes (Life-Threatening, Hospitalization, Other)
  Sender: FDA-Public Use
  Company Number: GB-VIIV HEALTHCARE LIMITED-GB2016GSK128526

PATIENT
  Age: 26 Year
  Sex: Female

DRUGS (9)
  1. ATAZANAVIR [Concomitant]
     Active Substance: ATAZANAVIR
     Dosage: UNK
     Dates: start: 20131111, end: 20160421
  2. KIVEXA [Concomitant]
     Active Substance: ABACAVIR SULFATE\LAMIVUDINE
     Dosage: UNK
     Dates: start: 20131111, end: 20160421
  3. TRIUMEQ [Suspect]
     Active Substance: ABACAVIR SULFATE\DOLUTEGRAVIR SODIUM\LAMIVUDINE
     Indication: PRODUCT USED FOR UNKNOWN INDICATION
     Dosage: UNK
     Route: 048
     Dates: start: 20160122
  4. TRUVADA [Concomitant]
     Active Substance: EMTRICITABINE\TENOFOVIR DISOPROXIL FUMARATE
     Dosage: UNK
     Dates: start: 20140904, end: 20160421
  5. PARACETAMOL [Concomitant]
     Active Substance: ACETAMINOPHEN
     Dosage: 500 MG, UNK
  6. EFAVIRENZ [Concomitant]
     Active Substance: EFAVIRENZ
     Dosage: UNK
     Dates: start: 20140414
  7. RALTEGRAVIR POTASSIUM [Concomitant]
     Active Substance: RALTEGRAVIR POTASSIUM
     Dosage: 400 MG, BID
     Dates: start: 20140904, end: 20160421
  8. RITONAVIR. [Concomitant]
     Active Substance: RITONAVIR
     Dosage: UNK
     Dates: start: 20131111, end: 20160421
  9. STRIBILD [Concomitant]
     Active Substance: COBICISTAT\ELVITEGRAVIR\EMTRICITABINE\TENOFOVIR DISOPROXIL FUMARATE
     Dosage: UNK
     Dates: start: 20141124, end: 20160421

REACTIONS (11)
  - Liver transplant [Unknown]
  - Coagulopathy [Unknown]
  - Jaundice [Unknown]
  - Diarrhoea [Unknown]
  - Hepatic necrosis [Unknown]
  - Lethargy [Unknown]
  - Nausea [Unknown]
  - Acute hepatic failure [Not Recovered/Not Resolved]
  - Drug-induced liver injury [Unknown]
  - Schistosomiasis liver [Unknown]
  - Transaminases increased [Unknown]

NARRATIVE: CASE EVENT DATE: 201311
